FAERS Safety Report 5386961-5 (Version None)
Quarter: 2007Q3

REPORT INFORMATION
  Report Type: 
  Country: None (occurrence: None)
  Receive Date: 20070713
  Receipt Date: 20070704
  Transmission Date: 20080115
  Serious: Yes (Other)
  Sender: FDA-Public Use
  Company Number: JP-PFIZER INC-2007055138

PATIENT
  Age: 69 Year
  Sex: Male

DRUGS (3)
  1. AZULFIDINE EN-TABS [Suspect]
     Indication: RHEUMATOID ARTHRITIS
     Route: 048
     Dates: start: 20070417, end: 20070601
  2. HYPEN [Concomitant]
     Route: 048
  3. MUCOSTA [Concomitant]
     Route: 048

REACTIONS (1)
  - DRUG ERUPTION [None]
